FAERS Safety Report 9487093 (Version 1)
Quarter: 2013Q3

REPORT INFORMATION
  Report Type: Spontaneous
  Country: US (occurrence: US)
  Receive Date: 20130829
  Receipt Date: 20130829
  Transmission Date: 20140515
  Serious: No
  Sender: FDA-Public Use
  Company Number: US-BAYER-2013-100990

PATIENT
  Age: 57 Year
  Sex: Male

DRUGS (2)
  1. STAXYN (FDT/ODT) [Suspect]
     Indication: ERECTILE DYSFUNCTION
     Dosage: 1 DF, QD
     Route: 048
     Dates: start: 201203, end: 201301
  2. AMIODARONE [Concomitant]

REACTIONS (1)
  - Drug ineffective [Not Recovered/Not Resolved]
